FAERS Safety Report 5408542-7 (Version None)
Quarter: 2007Q3

REPORT INFORMATION
  Report Type: 
  Country: None (occurrence: None)
  Receive Date: 20070713
  Receipt Date: 20070515
  Transmission Date: 20080115
  Serious: Yes (Other)
  Sender: FDA-Public Use
  Company Number: US-JNJFOC-20070303019

PATIENT
  Age: 19 Year
  Sex: Female

DRUGS (2)
  1. ORTHO EVRA [Suspect]
     Indication: CONTRACEPTION
     Dosage: 1 DOSE(S), 3 IN 4 WEEK, TRANSDERMAL
     Route: 062
  2. CLARAVIS [Concomitant]

REACTIONS (2)
  - DRUG EXPOSURE DURING PREGNANCY [None]
  - PREGNANCY WITH CONTRACEPTIVE PATCH [None]
